FAERS Safety Report 25250998 (Version 4)
Quarter: 2025Q2

REPORT INFORMATION
  Report Type: Spontaneous
  Country: US (occurrence: US)
  Receive Date: 20250429
  Receipt Date: 20250618
  Transmission Date: 20250717
  Serious: Yes (Other)
  Sender: UPSHER SMITH LABORATORIES
  Company Number: US-UPSHER-SMITH LABORATORIES, LLC-20250400788

PATIENT
  Sex: Female

DRUGS (4)
  1. ISOTRETINOIN [Suspect]
     Active Substance: ISOTRETINOIN
     Indication: Acne
     Route: 065
     Dates: start: 20240729, end: 20250410
  2. ISOTRETINOIN [Concomitant]
     Active Substance: ISOTRETINOIN
     Indication: Product used for unknown indication
     Route: 065
  3. ISOTRETINOIN [Concomitant]
     Active Substance: ISOTRETINOIN
     Route: 065
  4. ISOTRETINOIN [Concomitant]
     Active Substance: ISOTRETINOIN
     Route: 065

REACTIONS (1)
  - Exposure during pregnancy [Unknown]
